FAERS Safety Report 13465650 (Version 1)
Quarter: 2017Q2

REPORT INFORMATION
  Report Type: Spontaneous
  Country: US (occurrence: US)
  Receive Date: 20170420
  Receipt Date: 20170420
  Transmission Date: 20170830
  Serious: No
  Sender: FDA-Public Use
  Company Number: None

PATIENT
  Age: 53 Year
  Sex: Female

DRUGS (1)
  1. APOKYN [Suspect]
     Active Substance: APOMORPHINE HYDROCHLORIDE
     Indication: PARKINSON^S DISEASE
     Dosage: 0.2ML UP TO 5 TIMES PER DAY SUBCUTANEOUSLY
     Route: 058
     Dates: start: 20170308

REACTIONS (4)
  - Injection site reaction [None]
  - Somnolence [None]
  - Chest pain [None]
  - Incorrect dose administered [None]

NARRATIVE: CASE EVENT DATE: 20170419
